FAERS Safety Report 7045676-8 (Version None)
Quarter: 2010Q4

REPORT INFORMATION
  Report Type: 
  Country: None (occurrence: None)
  Receive Date: 20101014
  Receipt Date: 20101012
  Transmission Date: 20110411
  Serious: Yes (Death)
  Sender: FDA-Public Use
  Company Number: US-GILEAD-2010-0032525

PATIENT
  Age: 57 Year
  Sex: Female
  Weight: 108.96 kg

DRUGS (15)
  1. LETAIRIS [Suspect]
     Indication: PULMONARY ARTERIAL HYPERTENSION
     Route: 048
     Dates: start: 20100805
  2. REVATIO [Concomitant]
  3. COUMADIN [Concomitant]
  4. LASIX [Concomitant]
  5. COREG [Concomitant]
  6. CARDIZEM [Concomitant]
  7. VYTORIN [Concomitant]
  8. SINGULAIR [Concomitant]
  9. SPIRIVA [Concomitant]
  10. PREDNISONE [Concomitant]
  11. LISINOPRIL [Concomitant]
  12. ZANTAC [Concomitant]
  13. BACTRIM [Concomitant]
  14. IMURAN [Concomitant]
  15. POTASSIUM CHLORIDE [Concomitant]

REACTIONS (1)
  - DEATH [None]
